FAERS Safety Report 20001698 (Version 1)
Quarter: 2021Q4

REPORT INFORMATION
  Report Type: Spontaneous
  Country: US (occurrence: US)
  Receive Date: 20211027
  Receipt Date: 20211027
  Transmission Date: 20220303
  Serious: Yes (Hospitalization)
  Sender: FDA-Public Use
  Company Number: None

PATIENT
  Age: 65 Year
  Sex: Male
  Weight: 80.29 kg

DRUGS (1)
  1. EMPAGLIFLOZIN [Suspect]
     Active Substance: EMPAGLIFLOZIN
     Indication: Diabetes mellitus
     Route: 048
     Dates: start: 20210401, end: 20210527

REACTIONS (5)
  - Hypoglycaemia [None]
  - Nausea [None]
  - Vomiting [None]
  - Pancreatitis [None]
  - Renal impairment [None]

NARRATIVE: CASE EVENT DATE: 20210513
